APPROVED DRUG PRODUCT: RISEDRONATE SODIUM
Active Ingredient: RISEDRONATE SODIUM
Strength: 35MG
Dosage Form/Route: TABLET, DELAYED RELEASE;ORAL
Application: A205066 | Product #001
Applicant: IMPAX LABORATORIES INC
Approved: Jun 29, 2018 | RLD: No | RS: No | Type: DISCN